FAERS Safety Report 11317305 (Version 1)
Quarter: 2015Q3

REPORT INFORMATION
  Report Type: Spontaneous
  Country: US (occurrence: US)
  Receive Date: 20150728
  Receipt Date: 20150728
  Transmission Date: 20151125
  Serious: No
  Sender: FDA-Public Use
  Company Number: US-BAYER-2015-388343

PATIENT
  Age: 82 Year
  Sex: Female
  Weight: 38.55 kg

DRUGS (2)
  1. MIRALAX [Suspect]
     Active Substance: POLYETHYLENE GLYCOL 3350
     Indication: CONSTIPATION
     Dosage: 1 DOSE, QOD
     Route: 048
     Dates: start: 20150719
  2. MIRALAX [Suspect]
     Active Substance: POLYETHYLENE GLYCOL 3350
     Indication: CONSTIPATION
     Dosage: 1 DOSE, QD
     Route: 048
     Dates: start: 20150615, end: 20150718

REACTIONS (2)
  - Weight decreased [Unknown]
  - Product use issue [Unknown]

NARRATIVE: CASE EVENT DATE: 20150615
